FAERS Safety Report 5908642-9 (Version None)
Quarter: 2008Q4

REPORT INFORMATION
  Report Type: 
  Country: None (occurrence: None)
  Receive Date: 20081006
  Receipt Date: 20080923
  Transmission Date: 20090506
  Serious: Yes (Hospitalization)
  Sender: FDA-Public Use
  Company Number: KR-ELI_LILLY_AND_COMPANY-KR200809005737

PATIENT
  Sex: Female
  Weight: 48.5 kg

DRUGS (13)
  1. PEMETREXED [Suspect]
     Indication: NON-SMALL CELL LUNG CANCER
     Dosage: 500 MG/M2, OTHER
     Route: 042
     Dates: start: 20080901
  2. TARCEVA [Suspect]
     Indication: NON-SMALL CELL LUNG CANCER
     Dosage: 150 MG, DAILY (1/D)
     Route: 048
     Dates: start: 20080902, end: 20080914
  3. FOLIC ACID [Concomitant]
     Dosage: 1 MG, UNK
     Route: 048
     Dates: start: 20080826
  4. VITAMIN B-12 [Concomitant]
     Dosage: 1000 MG, UNK
     Route: 042
     Dates: start: 20080826, end: 20080826
  5. DEXAMETHASONE [Concomitant]
     Dosage: 4 MG, UNK
     Route: 048
     Dates: start: 20080831, end: 20080902
  6. FUROSEMIDE [Concomitant]
     Indication: DIURETIC THERAPY
     Dates: start: 20080908
  7. SPIRONOLACTONE [Concomitant]
     Indication: DIURETIC THERAPY
     Dates: start: 20080908
  8. METHYLPREDNISOLONE [Concomitant]
     Dates: start: 20080908
  9. ACETYLCYSTEINE [Concomitant]
     Indication: ANTITUSSIVE THERAPY
     Dates: start: 20080908
  10. MEGESTROL ACETATE [Concomitant]
     Indication: ANOREXIA
     Dates: start: 20080909
  11. EPERISONE HYDROCHLORIDE [Concomitant]
     Indication: MUSCLE RELAXANT THERAPY
     Dates: start: 20080909
  12. RANITIDINE HYDROCHLORIDE [Concomitant]
     Indication: PEPTIC ULCER
     Dates: start: 20080909
  13. TALNIFLUMATE [Concomitant]
     Indication: PAIN
     Dates: start: 20080909

REACTIONS (1)
  - SPINAL FRACTURE [None]
